FAERS Safety Report 18683587 (Version 1)
Quarter: 2020Q4

REPORT INFORMATION
  Report Type: Spontaneous
  Country: US (occurrence: US)
  Receive Date: 20201230
  Receipt Date: 20201230
  Transmission Date: 20210114
  Serious: Yes (Hospitalization)
  Sender: FDA-Public Use
  Company Number: None

PATIENT
  Age: 76 Year
  Sex: Female
  Weight: 57.15 kg

DRUGS (7)
  1. ZOLEDRONIC ACID [Suspect]
     Active Substance: ZOLEDRONIC ACID
     Indication: METASTASES TO BONE
     Dosage: ?
     Route: 040
     Dates: start: 20161104, end: 20181219
  2. AMOXICILLIN/CLAVULANATE [Concomitant]
     Active Substance: AMOXICILLIN\CLAVULANATE POTASSIUM
     Dates: start: 20200507, end: 20200523
  3. AMOXICILLIN/CLAVULANATE [Concomitant]
     Active Substance: AMOXICILLIN\CLAVULANATE POTASSIUM
     Dates: start: 20200716, end: 20200723
  4. AMOXICILLIN/CLAVULANATE [Concomitant]
     Active Substance: AMOXICILLIN\CLAVULANATE POTASSIUM
     Dates: start: 20200818, end: 20200825
  5. CHLORHEXIDINE RINSE [Concomitant]
     Dates: start: 20200507, end: 20201230
  6. XGEVA [Suspect]
     Active Substance: DENOSUMAB
     Indication: METASTASES TO BONE
     Dosage: ?          OTHER FREQUENCY:ONCE EVERY 3 MONTH;?
     Route: 058
     Dates: start: 20190705, end: 20200313
  7. ERTAPENEM. [Concomitant]
     Active Substance: ERTAPENEM SODIUM
     Dates: start: 20200825, end: 20200917

REACTIONS (5)
  - Tooth disorder [None]
  - Exposed bone in jaw [None]
  - Therapy interrupted [None]
  - Squamous cell carcinoma [None]
  - Osteosclerosis [None]

NARRATIVE: CASE EVENT DATE: 20200318
